FAERS Safety Report 8388972 (Version 6)
Quarter: 2013Q3

REPORT INFORMATION
  Report Type: Spontaneous
  Country: US (occurrence: US)
  Receive Date: 20120203
  Receipt Date: 20130904
  Transmission Date: 20140515
  Serious: Yes (Hospitalization, Congenital Anomaly, Other)
  Sender: FDA-Public Use
  Company Number: US-PFIZER INC-2011105464

PATIENT
  Sex: Male
  Weight: 3.7 kg

DRUGS (17)
  1. ZOLOFT [Suspect]
     Dosage: 100 MG, TWO TABLETS DAILY
     Route: 064
  2. ZOLOFT [Suspect]
     Dosage: UNK
     Route: 064
     Dates: start: 200306, end: 200405
  3. ZOLOFT [Suspect]
     Dosage: 150 MG, 1X/DAY
     Route: 064
     Dates: start: 20030908
  4. ZOLOFT [Suspect]
     Dosage: UNK
     Route: 064
     Dates: start: 20040311
  5. ZOLOFT [Suspect]
     Dosage: UNK
     Route: 064
     Dates: start: 201305
  6. SERTRALINE HCL [Suspect]
     Dosage: UNK
     Route: 064
     Dates: start: 200306, end: 200405
  7. SERTRALINE HCL [Suspect]
     Dosage: UNK
     Route: 064
     Dates: start: 201305
  8. ASA [Concomitant]
     Dosage: UNK
     Route: 064
     Dates: start: 20040311
  9. PRENATAL VITAMINS [Concomitant]
     Dosage: UNK
     Route: 064
     Dates: start: 20040311
  10. TRAZODONE [Concomitant]
     Dosage: UNK
     Route: 064
  11. MEPERIDINE [Concomitant]
     Dosage: UNK
     Route: 064
  12. ALLEGRA [Concomitant]
     Dosage: UNK
     Route: 064
  13. TYLENOL [Concomitant]
     Dosage: UNK
     Route: 064
  14. DE-CHLOR DR LIQUID [Concomitant]
     Dosage: UNK
     Route: 064
  15. DAYQUIL [Concomitant]
     Dosage: UNK
     Route: 064
  16. SMZ/TMP [Concomitant]
     Dosage: UNK
     Route: 064
  17. NATALCARE GLOSS TABS [Concomitant]
     Dosage: UNK
     Route: 064

REACTIONS (7)
  - Foetal exposure during pregnancy [Unknown]
  - Persistent foetal circulation [Recovered/Resolved]
  - Neonatal aspiration [Recovered/Resolved]
  - Feeding disorder neonatal [Unknown]
  - Pulmonary vein occlusion [Unknown]
  - Atelectasis [Not Recovered/Not Resolved]
  - Congenital anomaly [Unknown]
